FAERS Safety Report 4609585-3 (Version None)
Quarter: 2005Q1

REPORT INFORMATION
  Report Type: 
  Country: None (occurrence: None)
  Receive Date: 20050314
  Receipt Date: 20050314
  Transmission Date: 20050727
  Serious: Yes (Hospitalization)
  Sender: FDA-Public Use
  Company Number: None

PATIENT
  Sex: Male
  Weight: 129.8 kg

DRUGS (2)
  1. GEFITINIB 250MG ASTRAZENECA [Suspect]
     Indication: GLIOBLASTOMA MULTIFORME
     Dosage: 500 MG PO QD
     Route: 048
     Dates: start: 20041109, end: 20050129
  2. RAPAMUNE [Suspect]
     Indication: GLIOBLASTOMA
     Dosage: 10 MG PO QD
     Route: 048
     Dates: start: 20041109, end: 20050129

REACTIONS (10)
  - ACUTE RESPIRATORY DISTRESS SYNDROME [None]
  - ASTHENIA [None]
  - BEDRIDDEN [None]
  - CLOSTRIDIUM COLITIS [None]
  - GRAND MAL CONVULSION [None]
  - HEMIPARESIS [None]
  - MALIGNANT NEOPLASM PROGRESSION [None]
  - PNEUMONIA ASPIRATION [None]
  - PULMONARY EMBOLISM [None]
  - THROMBOSIS [None]
